FAERS Safety Report 24372984 (Version 5)
Quarter: 2024Q4

REPORT INFORMATION
  Report Type: Spontaneous
  Country: US (occurrence: US)
  Receive Date: 20240927
  Receipt Date: 20241204
  Transmission Date: 20250114
  Serious: Yes (Hospitalization, Other)
  Sender: SUNOVION
  Company Number: US-SMPA-2024SPA002947AA

PATIENT

DRUGS (28)
  1. LATUDA [Suspect]
     Active Substance: LURASIDONE HYDROCHLORIDE
     Indication: Narcolepsy
     Dosage: UNK UNK, QD
     Route: 048
     Dates: start: 2024, end: 2024
  2. LUMRYZ [Suspect]
     Active Substance: SODIUM OXYBATE
     Indication: Narcolepsy
     Dosage: 4.5 G, ONCE NIGHTLY
     Route: 048
     Dates: start: 2024, end: 2024
  3. LUMRYZ [Suspect]
     Active Substance: SODIUM OXYBATE
     Dosage: 6 G, ONCE NIGHTLY
     Route: 048
     Dates: start: 2024, end: 2024
  4. LUMRYZ [Suspect]
     Active Substance: SODIUM OXYBATE
     Dosage: 7.5 G, ONCE NIGHTLY
     Route: 048
     Dates: start: 2024, end: 2024
  5. SUNOSI [Suspect]
     Active Substance: SOLRIAMFETOL
     Dosage: 150 MG, QD, DURING THE DAYTIME
     Route: 065
  6. LAMICTAL [Suspect]
     Active Substance: LAMOTRIGINE
     Dosage: LOWER DOSE
     Route: 065
  7. LAMICTAL [Suspect]
     Active Substance: LAMOTRIGINE
     Dosage: 125 MG OR 150 MG
     Route: 065
  8. LAMICTAL [Suspect]
     Active Substance: LAMOTRIGINE
     Dosage: 100 MG IN THE MORNING
     Route: 065
  9. ZEPBOUND [Concomitant]
     Active Substance: TIRZEPATIDE
     Dosage: 5 MG
     Route: 065
     Dates: start: 2024
  10. CYMBALTA [Concomitant]
     Active Substance: DULOXETINE HYDROCHLORIDE
     Dosage: 120 MG
     Route: 065
  11. FEXOFENADINE [Concomitant]
     Active Substance: FEXOFENADINE HYDROCHLORIDE
     Dosage: 180 MG
     Route: 065
  12. FAMOTIDINE [Concomitant]
     Active Substance: FAMOTIDINE
     Dosage: 40 MG
     Route: 065
  13. CELECOXIB [Concomitant]
     Active Substance: CELECOXIB
     Dosage: 100 MG IN THE  MORNING AND 100 MG IN THE EVENING
     Route: 065
  14. PANTOPRAZOLE [Concomitant]
     Active Substance: PANTOPRAZOLE
     Dosage: 20 MG
     Route: 065
  15. VALACYCLOVIR [Concomitant]
     Active Substance: VALACYCLOVIR HYDROCHLORIDE
     Dosage: 500 MG
     Route: 065
  16. MOUNJARO [Concomitant]
     Active Substance: TIRZEPATIDE
     Dosage: 2.5 MG
     Route: 065
     Dates: start: 2024, end: 2024
  17. MOUNJARO [Concomitant]
     Active Substance: TIRZEPATIDE
     Dosage: UNK
     Route: 065
     Dates: start: 2024
  18. ONDANSETRON [Concomitant]
     Active Substance: ONDANSETRON
     Route: 065
  19. GABAPENTIN [Concomitant]
     Active Substance: GABAPENTIN
     Dosage: 300 MG IN THE MORNING
     Route: 065
  20. LYSINE [Concomitant]
     Active Substance: LYSINE
     Dosage: 500 MG
     Route: 065
  21. VITAMIN D3 [Concomitant]
     Active Substance: CHOLECALCIFEROL
     Dosage: 500 ?G
     Route: 065
  22. VITAMIN C [Concomitant]
     Active Substance: ASCORBIC ACID
     Dosage: 500 MG
     Route: 065
  23. VITAMIN B12 [Concomitant]
     Active Substance: CYANOCOBALAMIN
     Dosage: 100 ?G
  24. MAGNESIUM [Concomitant]
     Active Substance: MAGNESIUM
     Dosage: 500 MG
     Route: 065
  25. PROBIOTICS NOS [Concomitant]
     Active Substance: PROBIOTICS NOS
     Dosage: AS NEEDED
  26. EPIPEN [Concomitant]
     Active Substance: EPINEPHRINE
     Dosage: AS NEEDED
  27. BETAMETHASONE\CLOTRIMAZOLE [Concomitant]
     Active Substance: BETAMETHASONE\CLOTRIMAZOLE
  28. CANNABIS SATIVA SUBSP. INDICA TOP [Concomitant]
     Active Substance: CANNABIS SATIVA SUBSP. INDICA TOP
     Dosage: UNK, QD
     Route: 065

REACTIONS (56)
  - Bipolar disorder [Recovered/Resolved]
  - Arrhythmia [Not Recovered/Not Resolved]
  - Serotonin syndrome [Recovering/Resolving]
  - Self-destructive behaviour [Unknown]
  - Suicidal ideation [Recovered/Resolved]
  - Hypophagia [Unknown]
  - Circadian rhythm sleep disorder [Unknown]
  - Burning sensation [Not Recovered/Not Resolved]
  - Balance disorder [Unknown]
  - Night sweats [Unknown]
  - Dehydration [Unknown]
  - Coordination abnormal [Unknown]
  - Depression [Unknown]
  - Facial pain [Not Recovered/Not Resolved]
  - Pain [Not Recovered/Not Resolved]
  - Brain fog [Unknown]
  - Time perception altered [Unknown]
  - Dissociation [Unknown]
  - Heart rate abnormal [Unknown]
  - Memory impairment [Unknown]
  - Hyperhidrosis [Unknown]
  - Nocturia [Unknown]
  - Enuresis [Unknown]
  - Emotional disorder [Unknown]
  - Middle insomnia [Unknown]
  - Dizziness [Unknown]
  - Dry mouth [Not Recovered/Not Resolved]
  - Akathisia [Not Recovered/Not Resolved]
  - Fatigue [Unknown]
  - Anxiety [Not Recovered/Not Resolved]
  - Vomiting [Unknown]
  - Bradykinesia [Unknown]
  - Insomnia [Unknown]
  - Hypersomnia [Unknown]
  - Panic attack [Unknown]
  - Tachycardia [Unknown]
  - Mental disorder [Unknown]
  - Stress [Unknown]
  - Trismus [Unknown]
  - Transient lingual papillitis [Unknown]
  - Hypermetabolism [Unknown]
  - Energy increased [Unknown]
  - Crying [Unknown]
  - Social avoidant behaviour [Unknown]
  - Feeling of despair [Unknown]
  - Psychological trauma [Unknown]
  - Photophobia [Unknown]
  - Palpitations [Unknown]
  - Somnolence [Unknown]
  - Nausea [Unknown]
  - Emotional disorder [Unknown]
  - Paranoia [Unknown]
  - Unevaluable event [Unknown]
  - Therapeutic product effect decreased [Unknown]
  - Therapeutic product effect prolonged [Unknown]
  - Product dose omission issue [Unknown]

NARRATIVE: CASE EVENT DATE: 20240401
